FAERS Safety Report 6813678-X (Version None)
Quarter: 2010Q3

REPORT INFORMATION
  Report Type: 
  Country: None (occurrence: None)
  Receive Date: 20100701
  Receipt Date: 20100625
  Transmission Date: 20110219
  Serious: Yes (Other)
  Sender: FDA-Public Use
  Company Number: GB-PURDUE-GBR-2010-0006537

PATIENT
  Sex: Male

DRUGS (8)
  1. AMINOPHYLLINE [Suspect]
     Indication: PRODUCT USED FOR UNKNOWN INDICATION
     Dosage: 225 MG, BID
     Route: 065
  2. COMTESS [Interacting]
     Dosage: 1 DF, DAILY
     Route: 048
     Dates: start: 20090401, end: 20100301
  3. BUDESONIDE [Concomitant]
     Route: 055
  4. METHOTREXATE [Concomitant]
     Dosage: 10 MG, WEEKLY
     Route: 065
  5. PREDNISOLONE [Concomitant]
     Route: 065
  6. ALBUTEROL [Concomitant]
     Route: 055
  7. SINEMET [Concomitant]
     Route: 065
  8. ALENDRONATE SODIUM [Concomitant]

REACTIONS (3)
  - DRUG INTERACTION [None]
  - NAUSEA [None]
  - RESPIRATORY DISORDER [None]
